FAERS Safety Report 4912088-X (Version None)
Quarter: 2006Q1

REPORT INFORMATION
  Report Type: 
  Country: None (occurrence: None)
  Receive Date: 20060213
  Receipt Date: 20060130
  Transmission Date: 20060701
  Serious: Yes (Other)
  Sender: FDA-Public Use
  Company Number: L06-ESP-00053-01

PATIENT
  Age: 61 Year
  Sex: Male

DRUGS (2)
  1. CARBAMAZEPINE [Suspect]
     Indication: CONVULSION
     Dosage: 800 MG QD
  2. CLARITHROMYCIN [Suspect]
     Dosage: 500 MG QD

REACTIONS (11)
  - BRADYPHRENIA [None]
  - CONFUSIONAL STATE [None]
  - DIPLOPIA [None]
  - DISORIENTATION [None]
  - DRUG INTERACTION [None]
  - DRUG LEVEL INCREASED [None]
  - DRUG TOXICITY [None]
  - DYSARTHRIA [None]
  - HEPATOMEGALY [None]
  - HYPONATRAEMIA [None]
  - SOMNOLENCE [None]
